FAERS Safety Report 10695857 (Version 4)
Quarter: 2015Q1

REPORT INFORMATION
  Report Type: Spontaneous
  Country: CH (occurrence: CH)
  Receive Date: 20150107
  Receipt Date: 20150225
  Transmission Date: 20150721
  Serious: Yes (Other)
  Sender: FDA-Public Use
  Company Number: CH-BAYER-2015-001262

PATIENT
  Age: 39 Year
  Sex: Male

DRUGS (1)
  1. BETAFERON [Suspect]
     Active Substance: INTERFERON BETA-1B
     Indication: MULTIPLE SCLEROSIS
     Dosage: 250 ?G, QOD
     Route: 058
     Dates: start: 20141028, end: 2015

REACTIONS (4)
  - Influenza like illness [Recovered/Resolved]
  - Muscle fatigue [Unknown]
  - Multiple sclerosis [Unknown]
  - Mobility decreased [Unknown]
